FAERS Safety Report 6518624-4 (Version None)
Quarter: 2009Q4

REPORT INFORMATION
  Report Type: 
  Country: None (occurrence: None)
  Receive Date: 20091228
  Receipt Date: 20091217
  Transmission Date: 20100525
  Serious: Yes (Other)
  Sender: FDA-Public Use
  Company Number: US-ROCHE-666161

PATIENT
  Sex: Female
  Weight: 70.8 kg

DRUGS (1)
  1. BONIVA [Suspect]
     Indication: OSTEOPOROSIS
     Dosage: DOSE: 3 MG/3 ML; ROUTE: IVP
     Route: 042
     Dates: start: 20091017

REACTIONS (2)
  - JOINT EFFUSION [None]
  - SARCOIDOSIS [None]
